FAERS Safety Report 12475741 (Version 1)
Quarter: 2016Q2

REPORT INFORMATION
  Report Type: Spontaneous
  Country: US (occurrence: US)
  Receive Date: 20160617
  Receipt Date: 20160617
  Transmission Date: 20160815
  Serious: Yes (Other)
  Sender: FDA-Public Use
  Company Number: US-BAYER-2016-117446

PATIENT
  Age: 26 Year
  Sex: Female

DRUGS (1)
  1. MIRENA [Suspect]
     Active Substance: LEVONORGESTREL
     Dosage: 20 MCG/24HR, CONT
     Route: 015
     Dates: start: 2014

REACTIONS (8)
  - Feeling abnormal [None]
  - Malaise [Not Recovered/Not Resolved]
  - Autoimmune disorder [None]
  - Rheumatoid factor increased [None]
  - Vaginal haemorrhage [None]
  - Antinuclear antibody increased [None]
  - Allergy to chemicals [None]
  - Abdominal pain lower [None]

NARRATIVE: CASE EVENT DATE: 2014
